FAERS Safety Report 7785645-3 (Version None)
Quarter: 2011Q3

REPORT INFORMATION
  Report Type: 
  Country: None (occurrence: None)
  Receive Date: 20110929
  Receipt Date: 20110929
  Transmission Date: 20111222
  Serious: Yes (Hospitalization)
  Sender: FDA-Public Use
  Company Number: None

PATIENT
  Age: 74 Year
  Sex: Male
  Weight: 67.131 kg

DRUGS (2)
  1. ASPIRIN [Concomitant]
     Indication: HYPERCOAGULATION
     Route: 048
  2. PRADAXA [Suspect]
     Indication: SYSTEMIC LUPUS ERYTHEMATOSUS
     Dates: start: 20110721, end: 20110919

REACTIONS (2)
  - UPPER GASTROINTESTINAL HAEMORRHAGE [None]
  - GASTRITIS [None]
